FAERS Safety Report 6649468-0 (Version None)
Quarter: 2010Q1

REPORT INFORMATION
  Report Type: 
  Country: None (occurrence: None)
  Receive Date: 20100322
  Receipt Date: 20100311
  Transmission Date: 20100710
  Serious: Yes (Death, Life-Threatening, Disabling, Other)
  Sender: FDA-Public Use
  Company Number: DSA_42107_2009

PATIENT
  Sex: Female

DRUGS (6)
  1. XENAZINE [Suspect]
     Indication: HUNTINGTON'S CHOREA
     Dosage: DF ORAL , 25 MG TID ORAL
     Route: 048
     Dates: start: 20090101
  2. XENAZINE [Suspect]
     Indication: HUNTINGTON'S CHOREA
     Dosage: DF ORAL , 25 MG TID ORAL
     Route: 048
     Dates: start: 20090807
  3. ROBINUL [Suspect]
     Indication: SALIVARY HYPERSECRETION
     Dosage: 4 MG BID
     Dates: start: 20090101
  4. HALDOL [Concomitant]
  5. BACLOFEN [Concomitant]
  6. PROZAC [Concomitant]

REACTIONS (9)
  - FALL [None]
  - HEAD INJURY [None]
  - HYPERTONIA [None]
  - LOCKED-IN SYNDROME [None]
  - MOBILITY DECREASED [None]
  - MUTISM [None]
  - SALIVARY HYPERSECRETION [None]
  - SKIN LACERATION [None]
  - THIRST [None]
